FAERS Safety Report 17140721 (Version 1)
Quarter: 2019Q4

REPORT INFORMATION
  Report Type: Spontaneous
  Country: US (occurrence: US)
  Receive Date: 20191211
  Receipt Date: 20191211
  Transmission Date: 20200122
  Serious: Yes (Death, Other)
  Sender: FDA-Public Use
  Company Number: US-009507513-1912USA004439

PATIENT
  Age: 65 Year
  Sex: Female

DRUGS (5)
  1. TIZANIDINE HYDROCHLORIDE. [Suspect]
     Active Substance: TIZANIDINE HYDROCHLORIDE
     Dosage: ROUTES OF ADMINISTRATION: INGESTION AND INHALATION
  2. BELSOMRA [Suspect]
     Active Substance: SUVOREXANT
     Dosage: ROUTES OF ADMINISTRATION: INGESTION AND INHALATION
     Route: 048
  3. NONSTEROIDAL ANTI-INFLAMMATORY DRUG (UNSPECIFIED) [Suspect]
     Active Substance: UNSPECIFIED INGREDIENT
     Dosage: ROUTES OF ADMINISTRATION: INGESTION AND INHALATION
  4. REMERON [Suspect]
     Active Substance: MIRTAZAPINE
     Dosage: ROUTES OF ADMINISTRATION: INGESTION AND INHALATION
     Route: 048
  5. CARBON MONOXIDE [Suspect]
     Active Substance: CARBON MONOXIDE
     Dosage: ROUTES OF ADMINISTRATION: INGESTION AND INHALATION

REACTIONS (1)
  - Suspected suicide [Fatal]
